FAERS Safety Report 15985259 (Version 1)
Quarter: 2019Q1

REPORT INFORMATION
  Report Type: Spontaneous
  Country: US (occurrence: US)
  Receive Date: 20190220
  Receipt Date: 20190220
  Transmission Date: 20190418
  Serious: Yes (Other)
  Sender: FDA-Public Use
  Company Number: None

PATIENT
  Age: 20 Year
  Sex: Male

DRUGS (8)
  1. AFINITOR [Suspect]
     Active Substance: EVEROLIMUS
     Indication: BRAIN NEOPLASM
     Dosage: ?          OTHER FREQUENCY:1/2 TABS ALTERNATI;?
     Route: 048
  2. HYDROCORTISONE 10 MG TABLETS [Concomitant]
     Dates: start: 20181130
  3. CORTEF 5 MG TABLETS [Concomitant]
     Dates: start: 20051201
  4. GABAPENTIN 300 MG CAPSULES [Concomitant]
     Active Substance: GABAPENTIN
     Dates: start: 20181130
  5. GRANISETRON 1 MG TABLETS [Concomitant]
     Active Substance: GRANISETRON
     Dates: start: 20190210
  6. LEVOXYL 75 MCG TABLETS [Concomitant]
     Dates: start: 20051201
  7. DESMOPRESSION 0.1 MG TABLETS [Concomitant]
     Dates: start: 20180321
  8. DIAZEPAM 5 MG TABLETS [Concomitant]
     Dates: start: 20190218

REACTIONS (1)
  - Therapy cessation [None]

NARRATIVE: CASE EVENT DATE: 20190219
